FAERS Safety Report 17112818 (Version 2)
Quarter: 2020Q1

REPORT INFORMATION
  Report Type: Spontaneous
  Country: DE (occurrence: DE)
  Receive Date: 20191204
  Receipt Date: 20200212
  Transmission Date: 20200409
  Serious: Yes (Disabling, Other)
  Sender: FDA-Public Use
  Company Number: DE-MYLANLABS-2019M1118534

PATIENT
  Age: 67 Year
  Sex: Female
  Weight: 99 kg

DRUGS (5)
  1. CANDESARTAN COMP. ABZ [Suspect]
     Active Substance: CANDESARTAN CILEXETIL\HYDROCHLOROTHIAZIDE
     Indication: HYPERTENSION
     Dosage: 1 DOSAGE FORM, QD (TAKING FOR DECADES, 1-0-0)
     Route: 048
     Dates: start: 2008, end: 2018
  2. HYDROCHLOROTHIAZIDE,VALSARTAN MYLAN [Suspect]
     Active Substance: HYDROCHLOROTHIAZIDE\VALSARTAN
     Dosage: 12.5 MILLIGRAM, QD
     Route: 048
     Dates: start: 2003, end: 2004
  3. PROVAS COMP [Suspect]
     Active Substance: HYDROCHLOROTHIAZIDE\VALSARTAN
     Dosage: 12.5 MILLIGRAM, QD (1-0-0)
     Dates: start: 2004, end: 2008
  4. PROVAS COMP [Suspect]
     Active Substance: HYDROCHLOROTHIAZIDE\VALSARTAN
     Indication: HYPERTENSION
     Dosage: 12.5 MILLIGRAM, QD
     Route: 048
     Dates: end: 2003
  5. HYDROCHLOROTHIAZIDE,VALSARTAN MYLAN [Suspect]
     Active Substance: HYDROCHLOROTHIAZIDE\VALSARTAN
     Indication: HYPERTENSION
     Dosage: 12.5 MILLIGRAM, QD (VALSARTAN COMP)
     Route: 048
     Dates: start: 2003, end: 2014

REACTIONS (3)
  - Basal cell carcinoma [Not Recovered/Not Resolved]
  - Skin disorder [Not Recovered/Not Resolved]
  - Actinic keratosis [Not Recovered/Not Resolved]
